FAERS Safety Report 6227583-3 (Version None)
Quarter: 2009Q2

REPORT INFORMATION
  Report Type: 
  Country: None (occurrence: None)
  Receive Date: 20090612
  Receipt Date: 20090602
  Transmission Date: 20091009
  Serious: Yes (Other)
  Sender: FDA-Public Use
  Company Number: US-BIOGENIDEC-2009BI004467

PATIENT
  Age: 58 Year
  Sex: Female

DRUGS (4)
  1. AVONEX [Suspect]
     Indication: MULTIPLE SCLEROSIS
     Route: 030
     Dates: start: 19980401, end: 20030101
  2. AVONEX [Suspect]
     Route: 030
     Dates: start: 20030101, end: 20040101
  3. AVONEX [Suspect]
     Route: 030
     Dates: start: 20040101
  4. SKELAXIN [Concomitant]
     Indication: MUSCLE SPASMS

REACTIONS (19)
  - CONTUSION [None]
  - EYE DISORDER [None]
  - FALL [None]
  - FUNGAL INFECTION [None]
  - HAEMORRHAGE [None]
  - HYPOTONIA [None]
  - INFLUENZA LIKE ILLNESS [None]
  - JOINT INJURY [None]
  - LIMB INJURY [None]
  - LOWER EXTREMITY MASS [None]
  - MALAISE [None]
  - MOBILITY DECREASED [None]
  - MUSCULAR WEAKNESS [None]
  - OEDEMA PERIPHERAL [None]
  - PAIN IN EXTREMITY [None]
  - PHOTOPHOBIA [None]
  - RETINAL DETACHMENT [None]
  - RETINAL HAEMORRHAGE [None]
  - ROAD TRAFFIC ACCIDENT [None]
